FAERS Safety Report 4684741-7 (Version None)
Quarter: 2005Q2

REPORT INFORMATION
  Report Type: 
  Country: None (occurrence: None)
  Receive Date: 20050603
  Receipt Date: 20050524
  Transmission Date: 20051028
  Serious: Yes (Death)
  Sender: FDA-Public Use
  Company Number: 2004114971

PATIENT

DRUGS (2)
  1. IRINOTECAN HCL [Suspect]
     Indication: RECTAL CANCER
     Dosage: 40 MG (INTERMITTENT), INTRAVENOUS
     Route: 042
  2. FURTULON (DOXIFLURIDINE) [Concomitant]

REACTIONS (2)
  - APHAGIA [None]
  - INTERSTITIAL LUNG DISEASE [None]
